FAERS Safety Report 6487092-3 (Version None)
Quarter: 2009Q4

REPORT INFORMATION
  Report Type: 
  Country: None (occurrence: None)
  Receive Date: 20091210
  Receipt Date: 20091019
  Transmission Date: 20100525
  Serious: No
  Sender: FDA-Public Use
  Company Number: US-AMGEN-KDL358946

PATIENT
  Sex: Female
  Weight: 68.1 kg

DRUGS (2)
  1. ENBREL [Suspect]
     Indication: RHEUMATOID ARTHRITIS
     Route: 058
     Dates: start: 20090726
  2. METHOTREXATE [Concomitant]

REACTIONS (7)
  - DEHYDRATION [None]
  - DRY EYE [None]
  - DRY MOUTH [None]
  - DRY THROAT [None]
  - NASAL DRYNESS [None]
  - POLLAKIURIA [None]
  - THIRST [None]
